FAERS Safety Report 4575361-3 (Version None)
Quarter: 2005Q1

REPORT INFORMATION
  Report Type: 
  Country: None (occurrence: None)
  Receive Date: 20050127
  Receipt Date: 20050127
  Transmission Date: 20050727
  Serious: No
  Sender: FDA-Public Use
  Company Number: None

PATIENT
  Age: 14 Year
  Sex: Male
  Weight: 60.782 kg

DRUGS (1)
  1. CITALOPRAM [Suspect]
     Dosage: 20MG   PO
     Route: 048

REACTIONS (2)
  - AGITATION [None]
  - PSYCHOMOTOR AGITATION [None]
